FAERS Safety Report 21837631 (Version 2)
Quarter: 2023Q1

REPORT INFORMATION
  Report Type: Report from Study
  Country: US (occurrence: None)
  Receive Date: 20230109
  Receipt Date: 20230110
  Transmission Date: 20230418
  Serious: Yes (Other)
  Sender: FDA-Public Use
  Company Number: US-ROCHE-3235153

PATIENT

DRUGS (4)
  1. ATEZOLIZUMAB [Suspect]
     Active Substance: ATEZOLIZUMAB
     Indication: Adenocarcinoma of colon
     Dosage: IV OVER 30-60 MINUTES ON DAY 1 OF EACH CYCLE, BEGINNING IN CYCLE 1 OR 2. TREATMENT REPEATS EVERY 14
     Route: 041
     Dates: start: 20221025
  2. FLUOROURACIL [Suspect]
     Active Substance: FLUOROURACIL
     Indication: Adenocarcinoma of colon
     Dosage: FOLLOWED BY 2400MG/M2 IV OVER 46HOURS DAYS 1-3
     Route: 040
     Dates: start: 20221025
  3. LEUCOVORIN CALCIUM [Suspect]
     Active Substance: LEUCOVORIN CALCIUM
     Indication: Adenocarcinoma of colon
     Dosage: IV OVER 2 DAY15
     Route: 040
     Dates: start: 20221025
  4. OXALIPLATIN [Suspect]
     Active Substance: OXALIPLATIN
     Indication: Adenocarcinoma of colon
     Dosage: OVER 2HOURS ON DAY1
     Route: 042
     Dates: start: 20221025

REACTIONS (2)
  - Colitis [Unknown]
  - Abdominal infection [Unknown]

NARRATIVE: CASE EVENT DATE: 20221029
